FAERS Safety Report 6216935-3 (Version None)
Quarter: 2009Q2

REPORT INFORMATION
  Report Type: 
  Country: None (occurrence: None)
  Receive Date: 20090604
  Receipt Date: 20090519
  Transmission Date: 20091009
  Serious: Yes (Death)
  Sender: FDA-Public Use
  Company Number: 8046576

PATIENT
  Age: 37 Year
  Sex: Male
  Weight: 83.6 kg

DRUGS (2)
  1. TUSSIONEX [Suspect]
     Indication: BRONCHITIS
     Dosage: 120 ML /D PO
     Route: 048
     Dates: start: 20090417, end: 20090418
  2. DOXYCYCLINE [Concomitant]

REACTIONS (3)
  - ACCIDENTAL OVERDOSE [None]
  - LOSS OF CONSCIOUSNESS [None]
  - RESPIRATORY DISTRESS [None]
